FAERS Safety Report 15280017 (Version 2)
Quarter: 2018Q3

REPORT INFORMATION
  Report Type: Report from Study
  Country: US (occurrence: US)
  Receive Date: 20180815
  Receipt Date: 20180820
  Transmission Date: 20181010
  Serious: No
  Sender: FDA-Public Use
  Company Number: US-SA-2018SA121269

PATIENT
  Age: 38 Year
  Sex: Female
  Weight: 70.3 kg

DRUGS (8)
  1. SYNTHROID [Concomitant]
     Active Substance: LEVOTHYROXINE SODIUM
     Indication: DRUG THERAPY
     Dosage: .25 MG,QD
     Route: 048
     Dates: start: 20170529
  2. GABAPENTIN. [Concomitant]
     Active Substance: GABAPENTIN
     Indication: PROPHYLAXIS
     Dosage: 300 MG,QD
     Route: 048
     Dates: start: 20170909
  3. PREDNISONE. [Concomitant]
     Active Substance: PREDNISONE
     Indication: DRUG THERAPY
     Dosage: 40 MG,QD
     Route: 048
     Dates: start: 20161026, end: 20161030
  4. ACZONE [Concomitant]
     Active Substance: DAPSONE
     Indication: PROPHYLAXIS
     Dosage: 5 G,QD
     Route: 061
     Dates: start: 20080101
  5. ESOMEPRAZOLE [Concomitant]
     Active Substance: ESOMEPRAZOLE
     Indication: PROPHYLAXIS
     Dosage: 40 MG,QD
     Route: 048
     Dates: start: 20170720
  6. PARACETAMOL [Concomitant]
     Active Substance: ACETAMINOPHEN
     Indication: PROPHYLAXIS
     Dosage: 650 MG,QD
     Route: 048
     Dates: start: 19980101
  7. ALEMTUZUMAB [Suspect]
     Active Substance: ALEMTUZUMAB
     Indication: RELAPSING-REMITTING MULTIPLE SCLEROSIS
     Dosage: 36 MG,UNK
     Route: 041
     Dates: start: 20091005, end: 20091007
  8. ERGOCALCIFEROL. [Concomitant]
     Active Substance: ERGOCALCIFEROL
     Indication: PROPHYLAXIS
     Dosage: 5000 IU,QD
     Route: 048
     Dates: start: 20160315

REACTIONS (1)
  - Pregnancy [Recovered/Resolved]

NARRATIVE: CASE EVENT DATE: 20171031
